FAERS Safety Report 8175436 (Version 2)
Quarter: 2012Q4

REPORT INFORMATION
  Report Type: 
  Country: US (occurrence: US)
  Receive Date: 20111011
  Receipt Date: 20120907
  Transmission Date: 20130627
  Serious: Yes (Hospitalization, Other)
  Sender: FDA-Public Use
  Company Number: US-JNJFOC-20110711814

PATIENT
  Age: 57 None
  Sex: Female
  Weight: 75.21 kg

DRUGS (1)
  1. LEVAQUIN [Suspect]
     Indication: BRONCHITIS
     Route: 048
     Dates: start: 20090529, end: 20090607

REACTIONS (4)
  - Rotator cuff syndrome [Unknown]
  - Tendon rupture [Unknown]
  - Rotator cuff syndrome [Recovering/Resolving]
  - Rotator cuff syndrome [Unknown]
